FAERS Safety Report 15928601 (Version 3)
Quarter: 2019Q1

REPORT INFORMATION
  Report Type: Spontaneous
  Country: US (occurrence: US)
  Receive Date: 20190206
  Receipt Date: 20190222
  Transmission Date: 20190417
  Serious: No
  Sender: FDA-Public Use
  Company Number: US-SA-2019SA026721

PATIENT
  Age: 67 Year
  Sex: Female

DRUGS (1)
  1. LANTUS SOLOSTAR [Suspect]
     Active Substance: INSULIN GLARGINE
     Indication: TYPE 2 DIABETES MELLITUS
     Dosage: 45 AND 47 UNITS, BID

REACTIONS (4)
  - Device operational issue [Unknown]
  - Inappropriate schedule of product administration [Unknown]
  - Injection site mass [Unknown]
  - Injection site injury [Unknown]
